FAERS Safety Report 25736848 (Version 1)
Quarter: 2025Q3

REPORT INFORMATION
  Report Type: Spontaneous
  Country: US (occurrence: None)
  Receive Date: 20250828
  Receipt Date: 20250828
  Transmission Date: 20251021
  Serious: Yes (Life-Threatening, Hospitalization)
  Sender: FDA-CTU
  Company Number: None

PATIENT
  Age: 25 Year
  Sex: Female
  Weight: 85.5 kg

DRUGS (6)
  1. PREDNISONE [Suspect]
     Active Substance: PREDNISONE
     Indication: Back pain
     Route: 048
     Dates: start: 20250713, end: 20250801
  2. LAMICTAL [Concomitant]
     Active Substance: LAMOTRIGINE
  3. GUANFACINE [Concomitant]
     Active Substance: GUANFACINE
  4. GABAPENTIN [Concomitant]
     Active Substance: GABAPENTIN
  5. TRAZODONE [Concomitant]
     Active Substance: TRAZODONE HYDROCHLORIDE
  6. ATIVAN [Concomitant]
     Active Substance: LORAZEPAM

REACTIONS (5)
  - Drug-disease interaction [None]
  - Impaired quality of life [None]
  - Impulsive behaviour [None]
  - Mania [None]
  - Anger [None]

NARRATIVE: CASE EVENT DATE: 20250713
